FAERS Safety Report 5650611-0 (Version None)
Quarter: 2008Q1

REPORT INFORMATION
  Report Type: 
  Country: None (occurrence: None)
  Receive Date: 20080304
  Receipt Date: 20080304
  Transmission Date: 20080703
  Serious: Yes (Life-Threatening, Hospitalization, Disabling)
  Sender: FDA-Public Use
  Company Number: None

PATIENT
  Age: 68 Year
  Sex: Female
  Weight: 109 kg

DRUGS (1)
  1. DIOVAN HCT [Suspect]
     Dosage: DAILY PO
     Route: 048

REACTIONS (4)
  - LOCAL SWELLING [None]
  - OXYGEN SATURATION DECREASED [None]
  - RESPIRATORY DISORDER [None]
  - SWELLING [None]
